FAERS Safety Report 9531183 (Version 1)
Quarter: 2013Q3

REPORT INFORMATION
  Report Type: Spontaneous
  Country: US (occurrence: None)
  Receive Date: 20130916
  Receipt Date: 20130916
  Transmission Date: 20140515
  Serious: Yes (Other)
  Sender: FDA-Public Use
  Company Number: MC201300427

PATIENT
  Sex: 0

DRUGS (1)
  1. ANGIOMAX, ANGIOX (BIVALIRUDIN) INJECTION [Suspect]
     Route: 042
     Dates: start: 20130902

REACTIONS (3)
  - Cardiac arrest [None]
  - Ventricular fibrillation [None]
  - Cardiac arrest [None]
